FAERS Safety Report 26153351 (Version 1)
Quarter: 2025Q4

REPORT INFORMATION
  Report Type: Spontaneous
  Country: US (occurrence: US)
  Receive Date: 20251214
  Receipt Date: 20251214
  Transmission Date: 20260117
  Serious: No
  Sender: Emerge Bioscience
  Company Number: US-EMERGE-2025MPSPO00484

PATIENT

DRUGS (1)
  1. ENOXAPARIN SODIUM [Suspect]
     Active Substance: ENOXAPARIN SODIUM
     Indication: Product used for unknown indication
     Route: 065

REACTIONS (5)
  - Injury associated with device [Unknown]
  - Occupational exposure to product [Unknown]
  - Product quality issue [Unknown]
  - Device safety feature issue [Unknown]
  - Device use error [Unknown]
